FAERS Safety Report 13433179 (Version 3)
Quarter: 2017Q2

REPORT INFORMATION
  Report Type: Report from Study
  Country: None (occurrence: GB)
  Receive Date: 20170412
  Receipt Date: 20170425
  Transmission Date: 20170830
  Serious: Yes (Other)
  Sender: FDA-Public Use
  Company Number: GB-ABBVIE-17K-167-1938683-00

PATIENT
  Age: 29 Year
  Sex: Female

DRUGS (1)
  1. HUMIRA [Suspect]
     Active Substance: ADALIMUMAB
     Indication: PRODUCT USED FOR UNKNOWN INDICATION
     Dosage: LOADING DOSE
     Route: 058
     Dates: start: 20170322, end: 20170322

REACTIONS (14)
  - Dizziness [Unknown]
  - Abdominal distension [Unknown]
  - Arthralgia [Unknown]
  - Vision blurred [Unknown]
  - Dyspnoea [Unknown]
  - Chest pain [Recovered/Resolved]
  - Joint swelling [Unknown]
  - Nausea [Unknown]
  - Paraesthesia [Not Recovered/Not Resolved]
  - Headache [Unknown]
  - Tongue spasm [Not Recovered/Not Resolved]
  - Gait disturbance [Not Recovered/Not Resolved]
  - Muscle spasms [Not Recovered/Not Resolved]
  - Abnormal sensation in eye [Unknown]

NARRATIVE: CASE EVENT DATE: 2017
